FAERS Safety Report 18387862 (Version 1)
Quarter: 2020Q4

REPORT INFORMATION
  Report Type: Spontaneous
  Country: FR (occurrence: FR)
  Receive Date: 20201015
  Receipt Date: 20201015
  Transmission Date: 20210114
  Serious: Yes (Hospitalization)
  Sender: FDA-Public Use
  Company Number: FR-PFIZER INC-2020396174

PATIENT
  Age: 44 Year
  Sex: Female
  Weight: 100 kg

DRUGS (4)
  1. PROPYLEX [Concomitant]
     Active Substance: PROPYLTHIOURACIL
     Indication: HYPERTHYROIDISM
     Dosage: 50 MG, ALTERNATE DAY
     Route: 048
  2. SUTENT [Suspect]
     Active Substance: SUNITINIB MALATE
     Indication: RENAL CANCER
     Dosage: UNK
     Route: 048
     Dates: start: 20200615
  3. OPTILOVA [Suspect]
     Active Substance: ETHINYL ESTRADIOL\LEVONORGESTREL
     Indication: CONTRACEPTION
     Dosage: 1 DF, 1X/DAY
     Route: 048
     Dates: start: 20200619, end: 20200921
  4. CYNOMEL [Concomitant]
     Active Substance: LIOTHYRONINE SODIUM
     Indication: HYPERTHYROIDISM
     Dosage: UNK
     Route: 048

REACTIONS (5)
  - Weight increased [Recovering/Resolving]
  - Phlebitis [Not Recovered/Not Resolved]
  - Menstrual disorder [Recovered/Resolved]
  - Metrorrhagia [Recovered/Resolved]
  - Menorrhagia [Recovered/Resolved]

NARRATIVE: CASE EVENT DATE: 202006
